FAERS Safety Report 5503851-5 (Version None)
Quarter: 2007Q4

REPORT INFORMATION
  Report Type: 
  Country: None (occurrence: None)
  Receive Date: 20071030
  Receipt Date: 20071022
  Transmission Date: 20080405
  Serious: Yes (Other)
  Sender: FDA-Public Use
  Company Number: CHPA2007US11068

PATIENT
  Age: 7 Year
  Sex: Female

DRUGS (1)
  1. TRIAMINIC COLD AND NIGHT TIME COUGH GRAPE (NIGHT TIME COUGH GRAPE (NCH [Suspect]
     Dosage: 5 ML, BID, ORAL
     Route: 048
     Dates: start: 20071005, end: 20071012

REACTIONS (1)
  - HYPERSENSITIVITY [None]
